FAERS Safety Report 20940117 (Version 1)
Quarter: 2022Q2

REPORT INFORMATION
  Report Type: Spontaneous
  Country: US (occurrence: None)
  Receive Date: 20220609
  Receipt Date: 20220609
  Transmission Date: 20220721
  Serious: No
  Sender: FDA-Public Use
  Company Number: None

PATIENT
  Sex: Female

DRUGS (1)
  1. HUMIRA [Suspect]
     Active Substance: ADALIMUMAB
     Indication: Crohn^s disease
     Dosage: FREQUENCY : EVERY OTHER WEEK;?
     Route: 058
     Dates: start: 20211116

REACTIONS (8)
  - Pharyngeal swelling [None]
  - Musculoskeletal stiffness [None]
  - Pyrexia [None]
  - Vomiting [None]
  - Amenorrhoea [None]
  - Insurance issue [None]
  - Dysphagia [None]
  - Hypersensitivity [None]
